FAERS Safety Report 8986830 (Version 1)
Quarter: 2012Q4

REPORT INFORMATION
  Report Type: 
  Country: US (occurrence: US)
  Receive Date: 20121227
  Receipt Date: 20121227
  Transmission Date: 20130627
  Serious: Yes (Hospitalization, Other)
  Sender: FDA-Public Use
  Company Number: US-BIOGENIDEC-2008BI014328

PATIENT
  Age: 56 Year
  Sex: Female

DRUGS (6)
  1. AVONEX [Suspect]
     Indication: MULTIPLE SCLEROSIS
     Route: 030
     Dates: start: 20000711, end: 2003
  2. AVONEX [Suspect]
     Indication: MULTIPLE SCLEROSIS
     Route: 030
     Dates: start: 2003
  3. AVONEX [Suspect]
     Indication: MULTIPLE SCLEROSIS
     Route: 030
  4. BLOOD PRESSURE PILLS (NOS) [Concomitant]
     Indication: HYPERTENSION
  5. TOPAMAX [Concomitant]
     Indication: PARAESTHESIA
  6. INSULIN (NOS) [Concomitant]
     Indication: DIABETES MELLITUS

REACTIONS (11)
  - Uterine cancer [Recovered/Resolved]
  - Cerebrovascular accident [Not Recovered/Not Resolved]
  - Musculoskeletal disorder [Not Recovered/Not Resolved]
  - Stress [Unknown]
  - Laceration [Recovered/Resolved]
  - Fall [Recovered/Resolved]
  - Musculoskeletal pain [Recovered/Resolved]
  - Paraesthesia [Recovered/Resolved]
  - Injection site bruising [Recovered/Resolved]
  - Muscular weakness [Not Recovered/Not Resolved]
  - Pyrexia [Recovered/Resolved]
